FAERS Safety Report 4521297-3 (Version None)
Quarter: 2004Q4

REPORT INFORMATION
  Report Type: 
  Country: None (occurrence: None)
  Receive Date: 20041208
  Receipt Date: 20041201
  Transmission Date: 20050328
  Serious: Yes (Other)
  Sender: FDA-Public Use
  Company Number: PHBS2004US16080

PATIENT
  Age: 73 Year
  Sex: Male

DRUGS (2)
  1. LIORESAL [Suspect]
     Indication: MUSCLE SPASTICITY
     Dosage: 1985 MCG/DAY
     Route: 037
  2. LIORESAL [Suspect]
     Dosage: 270 MCG/DAY
     Route: 037

REACTIONS (2)
  - CATHETER RELATED COMPLICATION [None]
  - DRUG INEFFECTIVE [None]
